FAERS Safety Report 7086470-1 (Version None)
Quarter: 2010Q4

REPORT INFORMATION
  Report Type: 
  Country: None (occurrence: None)
  Receive Date: 20101105
  Receipt Date: 20101028
  Transmission Date: 20110411
  Serious: Yes (Other)
  Sender: FDA-Public Use
  Company Number: SE-SANOFI-AVENTIS-2010SA065952

PATIENT
  Age: 73 Year
  Sex: Male

DRUGS (5)
  1. LASIX [Suspect]
     Route: 048
     Dates: end: 20101001
  2. AMLODIPINE BESYLATE [Suspect]
     Dosage: STARTED 4-5 YEARS AGO. DOSE NOS.
     Route: 065
  3. ENALAPRIL MALEATE [Suspect]
     Route: 065
     Dates: end: 20101001
  4. CALCIUM [Suspect]
     Route: 065
     Dates: end: 20101001
  5. ETALPHA [Suspect]
     Route: 065
     Dates: end: 20101001

REACTIONS (2)
  - DRUG INTERACTION [None]
  - GASTROINTESTINAL HAEMORRHAGE [None]
